FAERS Safety Report 7327012-2 (Version None)
Quarter: 2011Q1

REPORT INFORMATION
  Report Type: 
  Country: None (occurrence: None)
  Receive Date: 20110302
  Receipt Date: 20110216
  Transmission Date: 20110831
  Serious: Yes (Hospitalization)
  Sender: FDA-Public Use
  Company Number: IT-CELGENEUS-083-C5013-11022014

PATIENT
  Sex: Male
  Weight: 84 kg

DRUGS (13)
  1. DEXAMETHASONE [Suspect]
     Indication: MULTIPLE MYELOMA
     Dosage: 20 MILLIGRAM
     Route: 065
     Dates: start: 20101020
  2. CONGESCOR [Concomitant]
     Dosage: 1.25 MILLIGRAM
     Route: 048
     Dates: start: 20110119
  3. BIFRIL [Concomitant]
     Indication: HYPERTENSION
     Dosage: 7.5 MILLIGRAM
     Route: 048
     Dates: start: 20100201
  4. ZYLORIC [Concomitant]
     Dosage: 300 MILLIGRAM
     Route: 048
     Dates: start: 19900101
  5. TRIATEC [Concomitant]
     Dosage: 2.5 MILLIGRAM
     Route: 048
     Dates: start: 20110105
  6. DIURESIX [Concomitant]
     Dosage: 10 MILLIGRAM
     Route: 048
     Dates: start: 20110105, end: 20110216
  7. CARDIOASPIRINE [Concomitant]
     Indication: THROMBOSIS PROPHYLAXIS
     Dosage: 100 MILLIGRAM
     Route: 048
     Dates: start: 20101020
  8. DEXAMETHASONE [Suspect]
     Dosage: 20 MILLIGRAM
     Route: 065
     Dates: start: 20110202, end: 20110210
  9. CC-5013 [Suspect]
     Dosage: 15 MILLIGRAM
     Route: 048
     Dates: start: 20110202, end: 20110210
  10. DEPONIT [Concomitant]
     Dosage: 5 MILLIGRAM
     Route: 062
     Dates: start: 20110119, end: 20110215
  11. LANSOPRAZOLE [Concomitant]
     Indication: PROPHYLAXIS
     Dosage: 30 MILLIGRAM
     Route: 048
     Dates: start: 20101020
  12. BACTRIM [Concomitant]
     Dosage: 2 TABLET
     Route: 048
     Dates: start: 20101020
  13. CC-5013 [Suspect]
     Indication: MULTIPLE MYELOMA
     Dosage: 25 MILLIGRAM
     Route: 048
     Dates: start: 20101020

REACTIONS (3)
  - GENERAL PHYSICAL HEALTH DETERIORATION [None]
  - ATRIAL FIBRILLATION [None]
  - RENAL FAILURE ACUTE [None]
